FAERS Safety Report 10133994 (Version 2)
Quarter: 2014Q2

REPORT INFORMATION
  Report Type: Spontaneous
  Country: US (occurrence: US)
  Receive Date: 20140428
  Receipt Date: 20140428
  Transmission Date: 20141212
  Serious: Yes (Other)
  Sender: FDA-Public Use
  Company Number: US-ASTELLAS-2013US011938

PATIENT
  Sex: Male

DRUGS (2)
  1. LEXISCAN [Suspect]
     Indication: CONVULSION
     Dosage: 0.4 UNK, TOTAL DOSE
     Route: 042
  2. KEPPRA [Concomitant]
     Indication: CONVULSION
     Route: 065

REACTIONS (2)
  - Off label use [Unknown]
  - Convulsion [Unknown]
